FAERS Safety Report 13829216 (Version 3)
Quarter: 2017Q4

REPORT INFORMATION
  Report Type: Spontaneous
  Country: DE (occurrence: DE)
  Receive Date: 20170803
  Receipt Date: 20171031
  Transmission Date: 20180320
  Serious: Yes (Hospitalization, Other)
  Sender: FDA-Public Use
  Company Number: DE-PFIZER INC-2017325674

PATIENT
  Age: 53 Year
  Sex: Female
  Weight: 90 kg

DRUGS (1)
  1. FASTJEKT [Suspect]
     Active Substance: EPINEPHRINE
     Dosage: 0.30 MG, ONCE
     Route: 030
     Dates: start: 20170713, end: 20170713

REACTIONS (3)
  - Medication error [Recovered/Resolved]
  - Injection site reaction [Recovered/Resolved]
  - Accidental exposure to product [Recovered/Resolved]

NARRATIVE: CASE EVENT DATE: 20170713
